FAERS Safety Report 4290472-8 (Version None)
Quarter: 2004Q1

REPORT INFORMATION
  Report Type: 
  Country: None (occurrence: None)
  Receive Date: 20040209
  Receipt Date: 20040205
  Transmission Date: 20041129
  Serious: Yes (Other)
  Sender: FDA-Public Use
  Company Number: 200410033BYL

PATIENT
  Age: 70 Year
  Sex: Male
  Weight: 73 kg

DRUGS (5)
  1. ADALAT [Suspect]
     Indication: HYPERTENSION
     Dosage: 20 MG, QD, ORAL
     Route: 048
     Dates: start: 20030804, end: 20031202
  2. ITOROL [Concomitant]
  3. BLOPRESS [Concomitant]
  4. BUFFERIN [Concomitant]
  5. HARNAL [Concomitant]

REACTIONS (1)
  - PLATELET COUNT DECREASED [None]
